FAERS Safety Report 15567322 (Version 2)
Quarter: 2018Q4

REPORT INFORMATION
  Report Type: Spontaneous
  Country: FR (occurrence: FR)
  Receive Date: 20181030
  Receipt Date: 20181123
  Transmission Date: 20190205
  Serious: Yes (Hospitalization)
  Sender: FDA-Public Use
  Company Number: FR-TEVA-687308ROM

PATIENT
  Age: 66 Year
  Sex: Male
  Weight: 70 kg

DRUGS (10)
  1. METHYLPREDNISOLONE MYLAN [Suspect]
     Active Substance: METHYLPREDNISOLONE
     Dosage: 70 MILLIGRAM DAILY;
     Route: 042
     Dates: start: 20151228, end: 20151228
  2. PARACETAMOL [Suspect]
     Active Substance: ACETAMINOPHEN
     Route: 048
  3. ETOPOSIDE TEVA [Suspect]
     Active Substance: ETOPOSIDE
     Indication: B-CELL LYMPHOMA
     Dosage: 280 MILLIGRAM DAILY;
     Route: 041
     Dates: start: 20151228, end: 20151230
  4. ETOPOSIDE TEVA [Suspect]
     Active Substance: ETOPOSIDE
     Indication: B-CELL LYMPHOMA
  5. IFOSFAMIDE EG [Suspect]
     Active Substance: IFOSFAMIDE
     Indication: B-CELL LYMPHOMA
     Dosage: 2800 MILLIGRAM DAILY;
     Route: 041
     Dates: start: 20151228, end: 20151230
  6. MESNA EG [Suspect]
     Active Substance: MESNA
     Indication: B-CELL LYMPHOMA
     Dosage: 2775 MILLIGRAM DAILY;
     Route: 041
     Dates: start: 20151228, end: 20151230
  7. ONDANSETRON ACCORD [Suspect]
     Active Substance: ONDANSETRON
     Dosage: 16 MILLIGRAM DAILY;
     Route: 042
     Dates: start: 20151228, end: 20151230
  8. POLARAMINE [Suspect]
     Active Substance: DEXCHLORPHENIRAMINE MALEATE
     Dosage: 5 MILLIGRAM DAILY;
     Route: 042
     Dates: start: 20151228, end: 20151228
  9. PARACETAMOL [Suspect]
     Active Substance: ACETAMINOPHEN
     Route: 042
     Dates: start: 20151228
  10. MITOXANTRONE HYDROCHLORIDE. [Suspect]
     Active Substance: MITOXANTRONE HYDROCHLORIDE
     Route: 042
     Dates: start: 20151228, end: 20151228

REACTIONS (1)
  - Febrile bone marrow aplasia [Recovered/Resolved]

NARRATIVE: CASE EVENT DATE: 20160108
